FAERS Safety Report 8889235 (Version 3)
Quarter: 2013Q1

REPORT INFORMATION
  Report Type: Spontaneous
  Country: US (occurrence: US)
  Receive Date: 20121106
  Receipt Date: 20130311
  Transmission Date: 20140127
  Serious: Yes (Hospitalization, Other)
  Sender: FDA-Public Use
  Company Number: US-ROCHE-1088604

PATIENT
  Age: 19 Year
  Sex: Female
  Weight: 72.64 kg

DRUGS (3)
  1. ACCUTANE [Suspect]
     Indication: ACNE
     Route: 048
     Dates: start: 19980313, end: 19980804
  2. ACCUTANE [Suspect]
     Route: 048
     Dates: start: 20020118, end: 20020610
  3. VITAMIN B12 [Concomitant]

REACTIONS (12)
  - Crohn^s disease [Unknown]
  - Female genital tract fistula [Unknown]
  - Anal fissure [Unknown]
  - Inflammatory bowel disease [Unknown]
  - Gastroenteritis [Unknown]
  - Viral infection [Unknown]
  - Urinary tract infection [Unknown]
  - Burns second degree [Unknown]
  - Vision blurred [Unknown]
  - Arthralgia [Unknown]
  - Lip dry [Unknown]
  - Dry skin [Recovered/Resolved]
